FAERS Safety Report 5311980-4 (Version None)
Quarter: 2007Q2

REPORT INFORMATION
  Report Type: 
  Country: None (occurrence: None)
  Receive Date: 20070430
  Receipt Date: 20060728
  Transmission Date: 20071010
  Serious: No
  Sender: FDA-Public Use
  Company Number: 2006UW15261

PATIENT
  Age: 45 Year
  Sex: Male
  Weight: 108.9 kg

DRUGS (1)
  1. NEXIUM [Suspect]
     Route: 048

REACTIONS (2)
  - ABDOMINAL PAIN [None]
  - PALPITATIONS [None]
